FAERS Safety Report 7047797-2 (Version None)
Quarter: 2010Q4

REPORT INFORMATION
  Report Type: 
  Country: None (occurrence: None)
  Receive Date: 20101015
  Receipt Date: 20101005
  Transmission Date: 20110411
  Serious: Yes (Death)
  Sender: FDA-Public Use
  Company Number: US-PFIZER INC-2010126867

PATIENT
  Age: 20 Year
  Sex: Female

DRUGS (3)
  1. XANAX [Suspect]
     Dosage: UNK
  2. OXYCODONE [Suspect]
     Dosage: UNK
  3. SALICYLIC ACID [Suspect]
     Dosage: UNK

REACTIONS (1)
  - DRUG TOXICITY [None]
